FAERS Safety Report 4588233-5 (Version None)
Quarter: 2005Q1

REPORT INFORMATION
  Report Type: 
  Country: None (occurrence: None)
  Receive Date: 20050221
  Receipt Date: 20050209
  Transmission Date: 20050727
  Serious: Yes (Other)
  Sender: FDA-Public Use
  Company Number: CA-ROCHE-395235

PATIENT
  Age: 81 Year
  Sex: Male
  Weight: 83.9 kg

DRUGS (2)
  1. TAMIFLU [Suspect]
     Indication: INFLUENZA
     Route: 048
     Dates: start: 20050131, end: 20050205
  2. WARFARIN SODIUM [Concomitant]
     Indication: PROPHYLAXIS
     Dosage: THE PATIENT RECEIVED 4 MG DAILY UNTIL 1 FEBRUARY 2005, DOSE REDUCED TO 3 MG DAILYON 2 FEBRUARY UNTI+
     Route: 048
     Dates: start: 20050124

REACTIONS (1)
  - INTERNATIONAL NORMALISED RATIO INCREASED [None]
